FAERS Safety Report 5234345-2 (Version None)
Quarter: 2007Q1

REPORT INFORMATION
  Report Type: 
  Country: None (occurrence: None)
  Receive Date: 20070209
  Receipt Date: 20070201
  Transmission Date: 20070707
  Serious: Yes (Disabling, Other)
  Sender: FDA-Public Use
  Company Number: US-ABBOTT-06P-163-0346714-00

PATIENT
  Sex: Female
  Weight: 54.026 kg

DRUGS (7)
  1. ULTANE [Suspect]
     Indication: OCCUPATIONAL PROBLEM ENVIRONMENTAL
     Dates: end: 20020901
  2. ULTANE [Suspect]
     Indication: ANAESTHESIA
     Dates: start: 20020101, end: 20020101
  3. CALCIUM [Concomitant]
     Indication: DRUG USE FOR UNKNOWN INDICATION
  4. VITAMINS [Concomitant]
     Indication: DRUG USE FOR UNKNOWN INDICATION
  5. ACTIFED [Concomitant]
     Indication: RHINITIS ALLERGIC
  6. PSEUDOEPHEDRINE HYDROCHLORIDE [Concomitant]
     Indication: RHINITIS ALLERGIC
  7. ESTROGENS CONJUGATED [Concomitant]
     Indication: HYSTERECTOMY

REACTIONS (4)
  - DRUG TOXICITY [None]
  - RESPIRATORY DISORDER [None]
  - THROMBOSIS [None]
  - UNEVALUABLE EVENT [None]
